FAERS Safety Report 20853658 (Version 1)
Quarter: 2022Q2

REPORT INFORMATION
  Report Type: Spontaneous
  Country: US (occurrence: None)
  Receive Date: 20220518
  Receipt Date: 20220518
  Transmission Date: 20220721
  Serious: Yes (Other)
  Sender: FDA-Public Use
  Company Number: None

PATIENT
  Age: 78 Year
  Sex: Male
  Weight: 67.5 kg

DRUGS (4)
  1. ACETAMINOPHEN\HYDROCODONE [Suspect]
     Active Substance: ACETAMINOPHEN\HYDROCODONE
     Indication: Bladder spasm
     Dosage: FREQUENCY : EVERY 4 HOURS;?
     Route: 048
     Dates: start: 20220414, end: 20220415
  2. ALPRAZOLAM [Suspect]
     Active Substance: ALPRAZOLAM
  3. TOPROL XL [Concomitant]
     Active Substance: METOPROLOL SUCCINATE
  4. BUPROPION [Concomitant]
     Active Substance: BUPROPION

REACTIONS (5)
  - Confusional state [None]
  - Muscular weakness [None]
  - Dysarthria [None]
  - Gait inability [None]
  - Contraindicated product administered [None]

NARRATIVE: CASE EVENT DATE: 20220415
